FAERS Safety Report 5188341-4 (Version None)
Quarter: 2006Q4

REPORT INFORMATION
  Report Type: 
  Country: None (occurrence: None)
  Receive Date: 20061214
  Receipt Date: 20061204
  Transmission Date: 20070319
  Serious: Yes (Other)
  Sender: FDA-Public Use
  Company Number: 2005131125

PATIENT
  Age: 34 Year
  Sex: Female

DRUGS (8)
  1. NEURONTIN [Suspect]
     Indication: BIPOLAR DISORDER
     Dosage: 300 MG
     Dates: start: 20030201, end: 20030801
  2. LEXAPRO [Concomitant]
  3. SEROQUEL [Concomitant]
  4. WELLBUTRIN SR [Concomitant]
  5. GEODON [Concomitant]
  6. TRILEPTAL [Concomitant]
  7. XANAX [Concomitant]
  8. SOMA [Concomitant]

REACTIONS (5)
  - DEPRESSION [None]
  - DRUG INEFFECTIVE [None]
  - HALLUCINATION, AUDITORY [None]
  - SUICIDAL IDEATION [None]
  - SUICIDE ATTEMPT [None]
